FAERS Safety Report 9817800 (Version 2)
Quarter: 2014Q2

REPORT INFORMATION
  Report Type: Report from Study
  Country: US (occurrence: US)
  Receive Date: 20140115
  Receipt Date: 20140528
  Transmission Date: 20141212
  Serious: Yes (Hospitalization)
  Sender: FDA-Public Use
  Company Number: US-ROCHE-1331004

PATIENT
  Age: 44 Year
  Sex: Male
  Weight: 81.72 kg

DRUGS (1)
  1. VISMODEGIB [Suspect]
     Indication: BASAL CELL CARCINOMA
     Route: 065

REACTIONS (1)
  - Back pain [Recovered/Resolved]
